FAERS Safety Report 9450632 (Version 1)
Quarter: 2013Q3

REPORT INFORMATION
  Report Type: Spontaneous
  Country: US (occurrence: US)
  Receive Date: 20130809
  Receipt Date: 20130809
  Transmission Date: 20140515
  Serious: No
  Sender: FDA-Public Use
  Company Number: US-009507513-1307USA016514

PATIENT
  Age: 70 Year
  Sex: Female

DRUGS (1)
  1. NASONEX [Suspect]
     Indication: HYPERSENSITIVITY
     Dosage: 2 SPRAYS IN EACH NOSTRIL DAILY
     Route: 055
     Dates: start: 20090726

REACTIONS (2)
  - Hypersensitivity [Not Recovered/Not Resolved]
  - Product quality issue [Unknown]
